FAERS Safety Report 7651323-4 (Version None)
Quarter: 2011Q3

REPORT INFORMATION
  Report Type: 
  Country: None (occurrence: None)
  Receive Date: 20110802
  Receipt Date: 20110718
  Transmission Date: 20111222
  Serious: Yes (Other)
  Sender: FDA-Public Use
  Company Number: PHHY2011DE64989

PATIENT
  Sex: Female

DRUGS (2)
  1. ACTRAPID HUMAN [Concomitant]
     Dosage: UNK UKN, UNK
  2. RASILEZ [Suspect]
     Dosage: 1 DF, QD
     Dates: start: 20110716, end: 20110717

REACTIONS (3)
  - MALAISE [None]
  - BLOOD GLUCOSE INCREASED [None]
  - TACHYCARDIA [None]
